FAERS Safety Report 19828666 (Version 2)
Quarter: 2021Q4

REPORT INFORMATION
  Report Type: Spontaneous
  Country: ES (occurrence: ES)
  Receive Date: 20210914
  Receipt Date: 20211006
  Transmission Date: 20220304
  Serious: Yes (Death, Other)
  Sender: FDA-Public Use
  Company Number: ES-GILEAD-2021-0548152

PATIENT
  Age: 71 Year
  Sex: Female

DRUGS (10)
  1. REMDESIVIR [Suspect]
     Active Substance: REMDESIVIR
     Indication: COVID-19
     Dosage: LOADING DOSE
     Route: 042
     Dates: start: 20210902
  2. REMDESIVIR [Suspect]
     Active Substance: REMDESIVIR
     Dosage: SECOND DOSE
     Route: 042
     Dates: start: 20210903
  3. CEFTRIAXONE [Concomitant]
     Active Substance: CEFTRIAXONE
  4. DEXAMETHASONE [Concomitant]
     Active Substance: DEXAMETHASONE
  5. HIBOR [Concomitant]
  6. BISOPROLOL [Concomitant]
     Active Substance: BISOPROLOL
  7. TELMISARTAN [Concomitant]
     Active Substance: TELMISARTAN
  8. MANIDIPINE [Concomitant]
     Active Substance: MANIDIPINE
  9. VENLAFAXINE [Concomitant]
     Active Substance: VENLAFAXINE HYDROCHLORIDE
  10. MIRTAZAPINE [Concomitant]
     Active Substance: MIRTAZAPINE

REACTIONS (1)
  - Anaphylactic shock [Fatal]

NARRATIVE: CASE EVENT DATE: 20210903
